FAERS Safety Report 11350467 (Version 1)
Quarter: 2015Q3

REPORT INFORMATION
  Report Type: Spontaneous
  Country: None (occurrence: None)
  Receive Date: 20150806
  Receipt Date: 20150806
  Transmission Date: 20151125
  Serious: Yes (Disabling)
  Sender: FDA-Public Use
  Company Number: None

PATIENT
  Age: 61 Year
  Sex: Female
  Weight: 90.72 kg

DRUGS (2)
  1. RECLAST [Suspect]
     Active Substance: ZOLEDRONIC ACID
     Indication: ILL-DEFINED DISORDER
     Dosage: SINGLE DOSE  INTO A VEIN?INFUSION
  2. PREDNISONE. [Concomitant]
     Active Substance: PREDNISONE

REACTIONS (8)
  - Pain [None]
  - Chest pain [None]
  - Joint swelling [None]
  - Chills [None]
  - Abdominal distension [None]
  - Dyspnoea [None]
  - Cough [None]
  - Weight increased [None]

NARRATIVE: CASE EVENT DATE: 20150504
